FAERS Safety Report 21090851 (Version 2)
Quarter: 2022Q3

REPORT INFORMATION
  Report Type: Spontaneous
  Country: US (occurrence: US)
  Receive Date: 20220716
  Receipt Date: 20220720
  Transmission Date: 20221027
  Serious: Yes (Other)
  Sender: FDA-Public Use
  Company Number: US-AUROBINDO-AUR-APL-2022-026460

PATIENT
  Age: 2 Week
  Sex: Male

DRUGS (2)
  1. DEXAMETHASONE [Suspect]
     Active Substance: DEXAMETHASONE
     Indication: COVID-19 pneumonia
     Dosage: UNK
     Route: 065
  2. ANAKINRA [Suspect]
     Active Substance: ANAKINRA
     Indication: COVID-19 pneumonia
     Dosage: UNK
     Route: 065

REACTIONS (3)
  - Seizure [Unknown]
  - Off label use [Unknown]
  - Drug effective for unapproved indication [Unknown]
